FAERS Safety Report 7655833-5 (Version None)
Quarter: 2011Q3

REPORT INFORMATION
  Report Type: 
  Country: None (occurrence: None)
  Receive Date: 20110804
  Receipt Date: 20110801
  Transmission Date: 20111222
  Serious: Yes (Hospitalization, Other)
  Sender: FDA-Public Use
  Company Number: JP-PFIZER INC-2011157259

PATIENT
  Age: 78 Year
  Sex: Female
  Weight: 42 kg

DRUGS (10)
  1. DILTIAZEM HCL [Interacting]
     Dosage: 200 MG, UNK
     Route: 048
  2. ASPIRIN [Concomitant]
     Indication: ISCHAEMIC HEART DISEASE PROPHYLAXIS
     Dosage: UNK
     Route: 048
  3. SIGMART [Concomitant]
     Dosage: UNK
     Route: 048
  4. LIPITOR [Suspect]
     Dosage: UNK
     Route: 048
  5. ZOLPIDEM [Suspect]
     Dosage: UNK
     Route: 048
  6. FAMOTIDINE [Concomitant]
     Dosage: UNK
     Route: 048
  7. CLARITHROMYCIN [Interacting]
     Dosage: UNK
     Route: 048
  8. MUCOSTA [Concomitant]
     Dosage: UNK
     Route: 048
  9. CANDESARTAN CILEXETIL [Concomitant]
     Dosage: UNK
     Route: 048
  10. ALOSENN [Concomitant]
     Dosage: UNK
     Route: 048

REACTIONS (4)
  - HYPOTENSION [None]
  - DRUG INTERACTION [None]
  - ATRIOVENTRICULAR BLOCK COMPLETE [None]
  - BRADYCARDIA [None]
